FAERS Safety Report 13318211 (Version 2)
Quarter: 2018Q2

REPORT INFORMATION
  Report Type: Spontaneous
  Country: US (occurrence: US)
  Receive Date: 20170310
  Receipt Date: 20180418
  Transmission Date: 20180711
  Serious: No
  Sender: FDA-Public Use
  Company Number: US-009507513-1703USA004341

PATIENT
  Age: 69 Year
  Sex: Male

DRUGS (1)
  1. INTRON A [Suspect]
     Active Substance: INTERFERON ALFA-2B
     Indication: METAPLASIA
     Dosage: 1 DROP 4 TIMES DAILY
     Route: 047

REACTIONS (1)
  - Product use in unapproved indication [Unknown]
